FAERS Safety Report 4941573-X (Version None)
Quarter: 2006Q1

REPORT INFORMATION
  Report Type: 
  Country: None (occurrence: None)
  Receive Date: 20060307
  Receipt Date: 20060223
  Transmission Date: 20060701
  Serious: Yes (Hospitalization)
  Sender: FDA-Public Use
  Company Number: 2006-139091-NL

PATIENT
  Age: 38 Year
  Sex: Female

DRUGS (1)
  1. FOLLITROPIN BETA [Suspect]
     Dosage: DF

REACTIONS (5)
  - DYSPNOEA [None]
  - JUGULAR VEIN THROMBOSIS [None]
  - LYMPHADENOPATHY [None]
  - OVARIAN HYPERSTIMULATION SYNDROME [None]
  - SUBCLAVIAN VEIN THROMBOSIS [None]
